FAERS Safety Report 9684608 (Version 1)
Quarter: 2013Q4

REPORT INFORMATION
  Report Type: Spontaneous
  Country: US (occurrence: US)
  Receive Date: 20131112
  Receipt Date: 20131112
  Transmission Date: 20140711
  Serious: No
  Sender: FDA-Public Use
  Company Number: US-009507513-1310USA006470

PATIENT
  Age: 24 Year
  Sex: Male

DRUGS (2)
  1. REBETOL [Suspect]
     Indication: HEPATITIS
     Dosage: 1200 MG, TOTAL PER DAY
     Route: 048
     Dates: start: 20131009
  2. PEGINTRON [Suspect]

REACTIONS (1)
  - Rash [Not Recovered/Not Resolved]
